FAERS Safety Report 10375305 (Version 1)
Quarter: 2014Q1

REPORT INFORMATION
  Report Type: Spontaneous
  Country: US (occurrence: None)
  Receive Date: 20140306
  Receipt Date: 20140306
  Transmission Date: 20141002
  Serious: Yes (Hospitalization)
  Sender: FDA-Public Use
  Company Number: 163-21880-13010868

PATIENT
  Age: 80 Year
  Sex: Male
  Weight: 60.78 kg

DRUGS (6)
  1. REVLIMID (LENALIDOMIDE) (15 MILLIGRAM, CAPSULES) [Suspect]
     Indication: PLASMA CELL MYELOMA
     Dosage: 15 MG, 14 IN 14 D, PO
     Route: 048
     Dates: start: 20121222
  2. HYDROCODONE/ACETAMINOPHEN (REMEDEINE) (UNKNOWN) [Concomitant]
  3. MESALAMINE (MESALAZINE) (UNKNOWN) [Concomitant]
  4. POTASSIUM (POTASSIUM) (TABLETS) [Concomitant]
  5. VITAMIN B12 (CYANOCOBALAMIN) (UNKNOWN) [Concomitant]
  6. VITAMIN B6 (PYRIDOXINE HYDROCHLORIDE) (TABLETS) [Concomitant]

REACTIONS (2)
  - Anaemia [None]
  - Renal disorder [None]
